FAERS Safety Report 6051293-9 (Version None)
Quarter: 2009Q1

REPORT INFORMATION
  Report Type: 
  Country: None (occurrence: None)
  Receive Date: 20090126
  Receipt Date: 20090113
  Transmission Date: 20090719
  Serious: Yes (Death, Other)
  Sender: FDA-Public Use
  Company Number: US-BIOGENIDEC-2008BI034781

PATIENT
  Age: 51 Year
  Sex: Female

DRUGS (2)
  1. TYSABRI [Suspect]
     Indication: MULTIPLE SCLEROSIS
     Route: 042
     Dates: start: 20071018, end: 20081020
  2. TYSABRI [Suspect]
     Dates: start: 20070208, end: 20070308

REACTIONS (2)
  - ABDOMINAL HERNIA [None]
  - SEPSIS [None]
